FAERS Safety Report 8860673 (Version 2)
Quarter: 2012Q4

REPORT INFORMATION
  Report Type: Report from Study
  Country: US (occurrence: US)
  Receive Date: 20121025
  Receipt Date: 20121203
  Transmission Date: 20130627
  Serious: Yes (Hospitalization)
  Sender: FDA-Public Use
  Company Number: US-TEVA-366078USA

PATIENT
  Age: 55 Year
  Sex: Female
  Weight: 54.48 kg

DRUGS (16)
  1. OGX-011 [Suspect]
     Indication: NEOPLASM MALIGNANT
     Route: 042
     Dates: start: 20120820, end: 20120924
  2. PACLITAXEL [Suspect]
     Indication: NEOPLASM MALIGNANT
     Route: 042
     Dates: start: 20120820
  3. CARBOPLATIN [Suspect]
     Indication: NEOPLASM MALIGNANT
     Route: 042
     Dates: start: 20120820
  4. COMPAZINE [Concomitant]
  5. CYMBALTA [Concomitant]
  6. DILAUDID [Concomitant]
  7. LYRICA [Concomitant]
  8. HYDROCODONE W/ACETAMINOPHEN [Concomitant]
  9. OMEPRAZOLE [Concomitant]
  10. LOVENOX [Concomitant]
  11. LEVOTHYROXINE [Concomitant]
  12. MEGACE [Concomitant]
  13. METHADONE [Concomitant]
  14. NYSTATIN [Concomitant]
  15. PROCHLORPERAZINE MALEATE [Concomitant]
  16. AMBIEN [Concomitant]

REACTIONS (2)
  - Odynophagia [Recovered/Resolved]
  - Neck pain [Recovered/Resolved]
